FAERS Safety Report 14124752 (Version 2)
Quarter: 2020Q3

REPORT INFORMATION
  Report Type: Report from Study
  Country: JP (occurrence: JP)
  Receive Date: 20171025
  Receipt Date: 20171106
  Transmission Date: 20201104
  Serious: Yes (Death, Hospitalization)
  Sender: FDA-Public Use
  Company Number: JP-ASTRAZENECA-2016SE80753

PATIENT
  Age: 29877 Day
  Sex: Female

DRUGS (13)
  1. ASPIRIN ALUMINUM GLYCINATE MAGNESIUM CARBONATE [Concomitant]
     Indication: THROMBOSIS
     Dosage: 81.000 MG QD
     Route: 048
     Dates: end: 20160708
  2. OLMESARTAN MEDOXOMIL. [Concomitant]
     Active Substance: OLMESARTAN MEDOXOMIL
     Indication: HYPERTENSION
     Dosage: 10.000 MG QD
     Route: 048
     Dates: end: 20160731
  3. PRAVASTATIN SODIUM. [Concomitant]
     Active Substance: PRAVASTATIN SODIUM
     Indication: DYSLIPIDAEMIA
     Dosage: 10.000 MG QD
     Route: 048
     Dates: end: 20160708
  4. LOXOPROFEN SODIUM [Concomitant]
     Active Substance: LOXOPROFEN SODIUM
     Indication: BACK PAIN
     Dosage: 50.000 MG QD
     Route: 003
     Dates: end: 20160726
  5. CLOTIAZEPAM [Concomitant]
     Active Substance: CLOTIAZEPAM
     Indication: ANXIETY
     Dosage: 5.000 MG BID
     Route: 048
  6. CHINESE TRADITIONAL MEDICINE NOS [Concomitant]
     Active Substance: UNSPECIFIED INGREDIENT
     Indication: BACK PAIN
     Dosage: 2.500 G BID
     Route: 048
  7. FELBINAC [Concomitant]
     Active Substance: FELBINAC
     Indication: BACK PAIN
     Dosage: 40 G, PRN
     Route: 003
     Dates: start: 20160705, end: 20160726
  8. KETOTIFEN FUMARATE. [Concomitant]
     Active Substance: KETOTIFEN FUMARATE
     Indication: CONJUNCTIVITIS ALLERGIC
     Dosage: 0.050 % 3?4TIMES PER DAY
     Route: 047
     Dates: end: 20160726
  9. DICLOFENAC SODIUM. [Concomitant]
     Active Substance: DICLOFENAC SODIUM
     Indication: BACK PAIN
     Dosage: 140.000 MG QD
     Route: 003
     Dates: end: 20160726
  10. MEDI4736 [Suspect]
     Active Substance: DURVALUMAB
     Indication: BLADDER TRANSITIONAL CELL CARCINOMA
     Route: 042
     Dates: start: 20160629, end: 20160629
  11. TREMELIMUMAB. [Suspect]
     Active Substance: TREMELIMUMAB
     Indication: BLADDER TRANSITIONAL CELL CARCINOMA
     Route: 042
     Dates: start: 20160629, end: 20160629
  12. REBAMIPIDE [Concomitant]
     Active Substance: REBAMIPIDE
     Indication: PROPHYLAXIS
     Dosage: 100.000 MG TID
     Route: 048
     Dates: end: 20160726
  13. CELECOXIB. [Concomitant]
     Active Substance: CELECOXIB
     Indication: BACK PAIN
     Dosage: 100.000 MG BID
     Route: 048
     Dates: start: 20160621, end: 20160731

REACTIONS (1)
  - Gastric ulcer [Not Recovered/Not Resolved]

NARRATIVE: CASE EVENT DATE: 20160712
